FAERS Safety Report 10235655 (Version 1)
Quarter: 2014Q2

REPORT INFORMATION
  Report Type: Spontaneous
  Country: US (occurrence: US)
  Receive Date: 20140613
  Receipt Date: 20140613
  Transmission Date: 20141212
  Serious: Yes (Other)
  Sender: FDA-Public Use
  Company Number: US-009507513-1406USA006062

PATIENT
  Sex: Female

DRUGS (3)
  1. AMITRIPTYLINE HYDROCHLORIDE [Suspect]
     Dosage: UNK
  2. SUMATRIPTAN [Suspect]
     Dosage: UNK
  3. BACLOFEN [Suspect]
     Dosage: UNK

REACTIONS (2)
  - Abortion [Unknown]
  - Exposure during pregnancy [Unknown]
